FAERS Safety Report 23848678 (Version 4)
Quarter: 2024Q2

REPORT INFORMATION
  Report Type: Report from Study
  Country: PT (occurrence: PT)
  Receive Date: 20240513
  Receipt Date: 20240613
  Transmission Date: 20240715
  Serious: Yes (Hospitalization, Other)
  Sender: FDA-Public Use
  Company Number: PT-ABBVIE-5643964

PATIENT
  Age: 70 Year
  Sex: Male

DRUGS (28)
  1. CARBIDOPA\LEVODOPA [Suspect]
     Active Substance: CARBIDOPA\LEVODOPA
     Indication: Parkinson^s disease
     Dosage: 20 MG + 5 MG?MORN:20CC;MAINT:6.2CC/H;EXTRA:4.5CC
     Route: 050
     Dates: start: 2023, end: 20231019
  2. CARBIDOPA\LEVODOPA [Suspect]
     Active Substance: CARBIDOPA\LEVODOPA
     Dosage: 20 MG + 5 MG?MORN:15.5CC;MAINT:3.5CC/H;EXTRA:1.5CC
     Route: 050
     Dates: start: 20211123
  3. CARBIDOPA\LEVODOPA [Suspect]
     Active Substance: CARBIDOPA\LEVODOPA
     Dosage: 20 MG + 5 MG (GASTRIC)?MORN:20CC;MAINT:6.5CC/H;EXTRA:4.5CC
     Route: 050
     Dates: start: 20240222, end: 20240306
  4. CARBIDOPA\LEVODOPA [Suspect]
     Active Substance: CARBIDOPA\LEVODOPA
     Dosage: 20 MG + 5 MG (GASTRIC)?20CC;MAINT:6.2CC/H;EXTRA:4.5CC
     Route: 050
     Dates: start: 20231019, end: 20240222
  5. CARBIDOPA\LEVODOPA [Suspect]
     Active Substance: CARBIDOPA\LEVODOPA
     Dosage: 20 MG + 5 MG?5.9(DAY)+3.7(NIGH)CC/H;EXTRA:2CC
     Route: 050
     Dates: start: 20240307, end: 20240309
  6. CARBIDOPA\LEVODOPA [Suspect]
     Active Substance: CARBIDOPA\LEVODOPA
     Route: 050
  7. CARBIDOPA\LEVODOPA [Suspect]
     Active Substance: CARBIDOPA\LEVODOPA
     Dosage: 20 MG + 5 MG?FREQUENCY TEXT: MORN:20CC;MAIN:6.5CC/H;EXTRA:4.5CC?LAST ADMIN DATE: 2024
     Route: 050
     Dates: start: 20240314
  8. CARBIDOPA\LEVODOPA [Suspect]
     Active Substance: CARBIDOPA\LEVODOPA
     Dosage: 20 MG + 5 MG?FREQUENCY TEXT: MAINT:6.2(DAY)+3.7(NIGH)CC/H;EXTRA:2CC
     Route: 050
     Dates: start: 20240309, end: 20240314
  9. CARBIDOPA\LEVODOPA [Suspect]
     Active Substance: CARBIDOPA\LEVODOPA
     Route: 050
  10. CARBIDOPA\LEVODOPA [Suspect]
     Active Substance: CARBIDOPA\LEVODOPA
     Dosage: 20 MG + 5 MG (PEG)/20CC;MAIN:6.5CC/H;EXTRA:4.5CC
     Route: 050
     Dates: start: 20240514
  11. QUETIAPINE [Concomitant]
     Active Substance: QUETIAPINE
     Indication: Product used for unknown indication
     Dosage: 1 TABLET?FORM STRENGTH: 25 MILLIGRAM?FREQUENCY : IN THE MORNING?START DATE TEXT: BEFORE DUODOPA
     Route: 048
     Dates: start: 202405, end: 202405
  12. QUETIAPINE [Concomitant]
     Active Substance: QUETIAPINE
     Indication: Product used for unknown indication
     Dosage: 1 TABLET?FORM STRENGTH: 50 MILLIGRAM?FREQUENCY TEXT: AT BEDTIME?START DATE TEXT: BEFORE DUODOPA
     Route: 048
     Dates: start: 202405, end: 202405
  13. QUETIAPINE [Concomitant]
     Active Substance: QUETIAPINE
     Indication: Product used for unknown indication
     Dosage: 1 TABLET?FORM STRENGTH: 100 MILLIGRAM?FREQUENCY TEXT: AT LUNCH?FREQUENCY TEXT: AT DINNER?START DA...
     Route: 048
     Dates: start: 2024
  14. CYANOCOBALAMIN [Concomitant]
     Active Substance: CYANOCOBALAMIN
     Indication: Product used for unknown indication
     Dosage: 2 TABLET?FORM STRENGTH: 1 MILLIGRAM?START DATE TEXT: AFTER DUODOPA
     Route: 048
  15. SINEMET CR [Concomitant]
     Active Substance: CARBIDOPA\LEVODOPA
     Indication: Product used for unknown indication
     Dosage: 1 TABLET FREQUENCY: AT BEDTIME?SINEMET CR 200 + 50 (LEVODOPA + CARBIDOPA)/START DATE TEXT: BEFORE...
     Route: 048
     Dates: start: 20240307
  16. TAMSULOSIN [Concomitant]
     Active Substance: TAMSULOSIN
     Indication: Product used for unknown indication
     Dosage: 1 TABLET?FORM STRENGTH: 0.4 MILLIGRAM ?FREQUENCY: AT DINNER?FREQUENCY TEXT: AT BEDTIME
     Route: 048
  17. PAROXETINE [Concomitant]
     Active Substance: PAROXETINE
     Indication: Product used for unknown indication
     Dosage: 1 TABLET?FORM STRENGTH: 20 MILLIGRAM ?FREQUENCY: AT LUNCH?START DATE TEXT: BEFORE DUODOPA
     Route: 048
  18. DIAZEPAM [Concomitant]
     Active Substance: DIAZEPAM
     Indication: Product used for unknown indication
     Dosage: 1 TABLET?FORM STRENGTH: 5 MILLIGRAM ?FREQUENCY: AT BEDTIME?START DATE TEXT: BEFORE DUODOPA
     Route: 048
  19. ATORVASTATIN [Concomitant]
     Active Substance: ATORVASTATIN
     Indication: Product used for unknown indication
     Dosage: 1 TABLET?FORM STRENGTH: 20 MILLIGRAM?FREQUENCY TEXT: AT LUNCH?START DATE TEXT: BEFORE DUODOPA
     Route: 048
  20. SALINE [Concomitant]
     Active Substance: SODIUM CHLORIDE
     Indication: Product used for unknown indication
     Dosage: 3 LITERS
     Dates: start: 20240508
  21. ASPIRIN [Concomitant]
     Active Substance: ASPIRIN
     Indication: Product used for unknown indication
     Dosage: 1 TABLET?FORM STRENGTH: 100 MILLIGRAM ?FREQUENCY TEXT: AT LUNCH?FREQUENCY TEXT: AT DINNER
     Route: 048
  22. CARVEDILOL [Concomitant]
     Active Substance: CARVEDILOL
     Indication: Product used for unknown indication
     Dosage: 2 TABLET?FORM STRENGTH: 6.25 MILLIGRAM ?FREQUENCY TEXT: IN THE MORNING AND AT DINNER?START DATE T...
     Route: 048
  23. LACTULOSE [Concomitant]
     Active Substance: LACTULOSE
     Indication: Constipation
     Dosage: TIME INTERVAL: AS NECESSARY: 1 SACHET?AS NEEDED?FREQUENCY TEXT: SOS
     Route: 048
     Dates: start: 20221013
  24. PYRIDOXINE [Concomitant]
     Active Substance: PYRIDOXINE
     Indication: Product used for unknown indication
     Dosage: 0.5 TABLET?FORM STRENGTH: 300MILLIGRAM?FREQUENCY TEXT: AT BREAKFAST?START DATE TEXT: AFTER DUODOPA
  25. CYANOCOBALAMIN\FOLIC ACID\PYRIDOXINE HYDROCHLORIDE [Concomitant]
     Active Substance: CYANOCOBALAMIN\FOLIC ACID\PYRIDOXINE HYDROCHLORIDE
     Indication: Product used for unknown indication
     Dosage: 1 TABLET
     Route: 048
  26. LOSARTAN [Concomitant]
     Active Substance: LOSARTAN
     Indication: Product used for unknown indication
     Dosage: 0.5 TABLET?FORM STRENGTH: 50 MILLIGRAM?FREQUENCY TEXT: AT BREAKFAST?START DATE TEXT: AFTER DUODOPA
     Route: 048
  27. SINEMET [Concomitant]
     Active Substance: CARBIDOPA\LEVODOPA
     Indication: Product used for unknown indication
     Dosage: 6 TABLET?SINEMET (CARBIDOPA/LEVODOPA) 100/25?FREQUENCY TEXT: 2 AT LUNCH, 2 AT SNACK AND 2 AT DINN...
     Route: 048
     Dates: start: 20240415
  28. SINEMET [Concomitant]
     Active Substance: CARBIDOPA\LEVODOPA
     Indication: Product used for unknown indication
     Route: 048
     Dates: start: 2024

REACTIONS (17)
  - Anaemia [Recovering/Resolving]
  - Red blood cell sedimentation rate increased [Recovered/Resolved]
  - Motor dysfunction [Recovering/Resolving]
  - Bradykinesia [Recovering/Resolving]
  - Gait disturbance [Recovering/Resolving]
  - Musculoskeletal stiffness [Recovering/Resolving]
  - Benign prostatic hyperplasia [Not Recovered/Not Resolved]
  - On and off phenomenon [Recovering/Resolving]
  - Fatigue [Recovered/Resolved]
  - Dyspnoea [Recovered/Resolved]
  - Blood creatinine increased [Recovered/Resolved]
  - Haematuria [Recovered/Resolved]
  - Dehydration [Recovered/Resolved]
  - Confusional state [Recovered/Resolved]
  - Agitation [Recovered/Resolved]
  - Acute kidney injury [Recovered/Resolved]
  - Bladder irrigation [Unknown]

NARRATIVE: CASE EVENT DATE: 20240101
